FAERS Safety Report 4315225-3 (Version None)
Quarter: 2004Q1

REPORT INFORMATION
  Report Type: 
  Country: None (occurrence: None)
  Receive Date: 20040311
  Receipt Date: 20031022
  Transmission Date: 20041129
  Serious: Yes (Death, Hospitalization)
  Sender: FDA-Public Use
  Company Number: PHHO2003CA13412

PATIENT
  Age: 79 Year
  Sex: Male

DRUGS (4)
  1. GLYBURIDE [Concomitant]
  2. TYLENOL (CAPLET) [Concomitant]
  3. GABAPENTIN [Concomitant]
  4. CLOZARIL [Suspect]
     Indication: SCHIZOPHRENIA
     Dosage: 25 MG, QD
     Route: 048
     Dates: start: 20030818

REACTIONS (1)
  - RESPIRATORY ARREST [None]
